APPROVED DRUG PRODUCT: METHYLPREDNISOLONE SODIUM SUCCINATE
Active Ingredient: METHYLPREDNISOLONE SODIUM SUCCINATE
Strength: EQ 500MG BASE/VIAL
Dosage Form/Route: INJECTABLE;INJECTION
Application: A040888 | Product #003 | TE Code: AP
Applicant: SAGENT PHARMACEUTICALS INC
Approved: Jul 18, 2011 | RLD: No | RS: No | Type: RX